FAERS Safety Report 18568021 (Version 1)
Quarter: 2020Q4

REPORT INFORMATION
  Report Type: Spontaneous
  Country: ES (occurrence: ES)
  Receive Date: 20201202
  Receipt Date: 20201202
  Transmission Date: 20210114
  Serious: Yes (Hospitalization, Disabling, Other)
  Sender: FDA-Public Use
  Company Number: ES-LUPIN PHARMACEUTICALS INC.-2020-09779

PATIENT
  Age: 19 Year
  Sex: Male

DRUGS (6)
  1. ISONIAZID. [Suspect]
     Active Substance: ISONIAZID
     Indication: TUBERCULOSIS OF CENTRAL NERVOUS SYSTEM
     Dosage: UNK
     Route: 065
     Dates: start: 201709
  2. ETHAMBUTOL [Suspect]
     Active Substance: ETHAMBUTOL HYDROCHLORIDE
     Indication: TUBERCULOSIS OF CENTRAL NERVOUS SYSTEM
     Dosage: UNK
     Route: 065
     Dates: start: 201709
  3. DEXAMETHASONE. [Concomitant]
     Active Substance: DEXAMETHASONE
     Indication: PARADOXICAL DRUG REACTION
     Dosage: UNK
     Route: 065
     Dates: start: 201709
  4. RIFAMPIN. [Suspect]
     Active Substance: RIFAMPIN
     Indication: TUBERCULOSIS OF CENTRAL NERVOUS SYSTEM
     Dosage: UNK
     Route: 065
     Dates: start: 201709
  5. MOXIFLOXACIN HCL [Suspect]
     Active Substance: MOXIFLOXACIN
     Indication: TUBERCULOSIS OF CENTRAL NERVOUS SYSTEM
     Dosage: UNK
     Route: 065
     Dates: start: 201709
  6. DEXAMETHASONE. [Concomitant]
     Active Substance: DEXAMETHASONE
     Indication: ADJUVANT THERAPY
     Route: 065
     Dates: start: 2017

REACTIONS (12)
  - Brain stem infarction [Recovered/Resolved]
  - Somnolence [Recovered/Resolved]
  - Musculoskeletal stiffness [Recovered/Resolved]
  - Hydrocephalus [Recovered/Resolved]
  - Deafness unilateral [Not Recovered/Not Resolved]
  - General physical health deterioration [Recovered/Resolved]
  - Diplopia [Recovered/Resolved]
  - Tuberculoma of central nervous system [Recovered/Resolved with Sequelae]
  - Muscular weakness [Recovered/Resolved]
  - Thalamic infarction [Recovered/Resolved]
  - Gait disturbance [Recovered/Resolved]
  - Paradoxical drug reaction [Recovered/Resolved with Sequelae]

NARRATIVE: CASE EVENT DATE: 201709
